FAERS Safety Report 9876963 (Version 2)
Quarter: 2014Q1

REPORT INFORMATION
  Report Type: Other
  Country: US (occurrence: US)
  Receive Date: 20140206
  Receipt Date: 20140206
  Transmission Date: 20141002
  Serious: No
  Sender: FDA-Public Use
  Company Number: US-ACORDA-ACO_36570_2013

PATIENT
  Age: 80 Year
  Sex: Female
  Weight: 68.27 kg

DRUGS (16)
  1. AMPYRA [Suspect]
     Indication: ASTHENIA
     Dosage: 10 MG, Q 12 HRS
     Route: 048
     Dates: start: 20130525, end: 20130527
  2. COPAXONE [Concomitant]
     Indication: MULTIPLE SCLEROSIS
     Dosage: 20 MG, QD
     Route: 058
  3. LANTUS [Concomitant]
     Indication: DIABETES MELLITUS
     Dosage: 100 IU, QD
     Route: 058
  4. HUMALOG [Concomitant]
     Indication: DIABETES MELLITUS
     Dosage: 100 IU, QD
     Route: 058
  5. VESICARE [Concomitant]
     Indication: URINARY TRACT DISORDER
     Dosage: UNK, QD
     Route: 048
  6. NEXIUM [Concomitant]
     Indication: DYSPEPSIA
     Dosage: 40 MG, QD
     Route: 048
  7. INDERAL LA [Concomitant]
     Indication: MIGRAINE
     Dosage: 120 MG, QD
     Route: 048
  8. LIPITOR [Concomitant]
     Indication: BLOOD CHOLESTEROL INCREASED
     Dosage: 40 MG, QD
     Route: 048
  9. FOLIC ACID [Concomitant]
     Indication: PRODUCT USED FOR UNKNOWN INDICATION
     Dosage: 400 ?G, QD
     Route: 048
  10. OSCAL [Concomitant]
     Indication: OSTEOPOROSIS
     Dosage: 500 MG, QD
     Route: 048
  11. VITAMIN B6 [Concomitant]
     Indication: PRODUCT USED FOR UNKNOWN INDICATION
     Dosage: 50 MG, QD
     Route: 048
  12. VITAMIN B12 [Concomitant]
     Indication: PRODUCT USED FOR UNKNOWN INDICATION
     Dosage: 500 MG, QD
     Route: 048
  13. FISH OIL [Concomitant]
     Indication: BLOOD CHOLESTEROL INCREASED
     Dosage: 1000 MG, QD
     Route: 048
  14. VITAMIN C [Concomitant]
     Indication: PRODUCT USED FOR UNKNOWN INDICATION
     Dosage: 500 MG, QD
     Route: 048
  15. LISINOPRIL AND HYDROCHLOROTHIAZIDE [Concomitant]
     Indication: HYPERTENSION
     Dosage: 10/123.5 MG, QD
     Route: 048
  16. ASPIRIN [Concomitant]
     Indication: HYPERTENSION
     Dosage: 81 MG, QD
     Route: 048

REACTIONS (4)
  - Facial spasm [Recovered/Resolved]
  - Malaise [Recovered/Resolved]
  - Dizziness [Recovered/Resolved]
  - Headache [Recovered/Resolved]
